FAERS Safety Report 4422266-4 (Version None)
Quarter: 2004Q3

REPORT INFORMATION
  Report Type: 
  Country: None (occurrence: None)
  Receive Date: 20040810
  Receipt Date: 20040729
  Transmission Date: 20050211
  Serious: Yes (Death)
  Sender: FDA-Public Use
  Company Number: US-MERCK-0408USA00456

PATIENT
  Age: 7 Year
  Sex: Female

DRUGS (3)
  1. COSMEGEN [Suspect]
     Indication: NEPHROBLASTOMA
     Route: 065
  2. DOXORUBICIN [Concomitant]
     Indication: NEPHROBLASTOMA
     Route: 065
  3. VINCRISTINE SULFATE [Concomitant]
     Indication: NEPHROBLASTOMA
     Route: 065

REACTIONS (4)
  - MUCOSAL INFLAMMATION [None]
  - NEPHROBLASTOMA [None]
  - NEUTROPENIA [None]
  - PYREXIA [None]
